FAERS Safety Report 8247267 (Version 4)
Quarter: 2013Q2

REPORT INFORMATION
  Report Type: Spontaneous
  Country: US (occurrence: US)
  Receive Date: 20111116
  Receipt Date: 20130515
  Transmission Date: 20140414
  Serious: Yes (Life-Threatening, Other)
  Sender: FDA-Public Use
  Company Number: US-ABBOTT-11P-163-0872268-00

PATIENT
  Sex: 0

DRUGS (1)
  1. HUMIRA 40 MG/ 0.8 ML PRE-FILLED SYRINGE [Suspect]
     Indication: PRODUCT USED FOR UNKNOWN INDICATION

REACTIONS (12)
  - Pustular psoriasis [Not Recovered/Not Resolved]
  - Dermatitis exfoliative [Unknown]
  - Psoriasis [Unknown]
  - Skin plaque [Unknown]
  - Acne [Unknown]
  - Psoriasis [Unknown]
  - Alopecia [Unknown]
  - Rash pustular [Unknown]
  - Tonsillar inflammation [Unknown]
  - Anxiety [Unknown]
  - Mass [Unknown]
  - Insomnia [Unknown]
